FAERS Safety Report 12255720 (Version 1)
Quarter: 2016Q2

REPORT INFORMATION
  Report Type: Spontaneous
  Country: GB (occurrence: None)
  Receive Date: 20160411
  Receipt Date: 20160411
  Transmission Date: 20160815
  Serious: Yes (Disabling)
  Sender: FDA-Public Use
  Company Number: None

PATIENT
  Age: 42 Year
  Sex: Female
  Weight: 52 kg

DRUGS (6)
  1. MULTIVITAMINS [Concomitant]
     Active Substance: VITAMINS
  2. ANTIOXIDANTS [Concomitant]
  3. CODEINE [Concomitant]
     Active Substance: CODEINE
  4. BOTOX [Suspect]
     Active Substance: ONABOTULINUMTOXINA
     Indication: SKIN COSMETIC PROCEDURE
     Dosage: GIVEN INTO/UNDER THE SKIN
     Dates: start: 20150422
  5. DIAZEPAM. [Concomitant]
     Active Substance: DIAZEPAM
  6. PARACETAMOL [Concomitant]
     Active Substance: ACETAMINOPHEN

REACTIONS (23)
  - Feeling hot [None]
  - Nausea [None]
  - Small fibre neuropathy [None]
  - Respiratory disorder [None]
  - Pain [None]
  - Frequent bowel movements [None]
  - Fatigue [None]
  - Pain in extremity [None]
  - Dysstasia [None]
  - Impaired quality of life [None]
  - Gait disturbance [None]
  - Neck pain [None]
  - Weight decreased [None]
  - Muscle spasms [None]
  - Tremor [None]
  - Malaise [None]
  - Muscle twitching [None]
  - Anxiety [None]
  - Muscular weakness [None]
  - Heart rate irregular [None]
  - Feeling cold [None]
  - Sensory disturbance [None]
  - Exercise lack of [None]

NARRATIVE: CASE EVENT DATE: 20150422
